FAERS Safety Report 9562816 (Version 1)
Quarter: 2013Q3

REPORT INFORMATION
  Report Type: Spontaneous
  Country: SK (occurrence: SK)
  Receive Date: 20130927
  Receipt Date: 20130927
  Transmission Date: 20140515
  Serious: Yes (Hospitalization)
  Sender: FDA-Public Use
  Company Number: SK-TEVA-432910ISR

PATIENT
  Age: 87 Year
  Sex: Female

DRUGS (1)
  1. ATENOLOL [Suspect]
     Indication: ESSENTIAL HYPERTENSION
     Route: 048
     Dates: end: 20130815

REACTIONS (2)
  - Atrioventricular block complete [Recovered/Resolved]
  - Adams-Stokes syndrome [Recovered/Resolved]
